FAERS Safety Report 9018335 (Version 1)
Quarter: 2013Q1

REPORT INFORMATION
  Report Type: Spontaneous
  Country: US (occurrence: None)
  Receive Date: 20130111
  Receipt Date: 20130111
  Transmission Date: 20140127
  Serious: Yes (Hospitalization)
  Sender: FDA-Public Use
  Company Number: None

PATIENT
  Age: 76 Year
  Sex: Male
  Weight: 81.9 kg

DRUGS (8)
  1. HEPARIN [Suspect]
     Indication: ANTICOAGULANT THERAPY
     Dosage: 4000 UNITS / 2472 UNITS ONCE/ONCE IV
     Route: 042
  2. AMIODARONE [Suspect]
     Indication: ATRIAL FIBRILLATION
     Dosage: 200MG WITH MEALS PO
     Route: 048
  3. LIPITOR [Concomitant]
  4. SYMBICORT [Concomitant]
  5. COREG [Concomitant]
  6. SYNTHROID [Concomitant]
  7. SENOKOT [Concomitant]
  8. FLOMAX [Concomitant]

REACTIONS (8)
  - Thrombocytopenia [None]
  - Haemodialysis [None]
  - Idiopathic thrombocytopenic purpura [None]
  - Immune system disorder [None]
  - Disseminated intravascular coagulation [None]
  - Anti-platelet antibody positive [None]
  - Renal failure acute [None]
  - Cardiorenal syndrome [None]
